FAERS Safety Report 12630678 (Version 1)
Quarter: 2016Q3

REPORT INFORMATION
  Report Type: Spontaneous
  Country: NZ (occurrence: NZ)
  Receive Date: 20160808
  Receipt Date: 20160808
  Transmission Date: 20161109
  Serious: Yes (Other)
  Sender: FDA-Public Use
  Company Number: ALCN2016NZ005462

PATIENT
  Age: 25 Year
  Sex: Female

DRUGS (2)
  1. CIPROFLOXACIN. [Concomitant]
     Active Substance: CIPROFLOXACIN
     Indication: EYE INFECTION BACTERIAL
     Dosage: 500 MG, BID
     Route: 048
  2. CIPROFLOXACIN. [Suspect]
     Active Substance: CIPROFLOXACIN
     Indication: EYE INFECTION BACTERIAL
     Route: 047

REACTIONS (1)
  - Corneal perforation [Unknown]
